FAERS Safety Report 6998606-9 (Version None)
Quarter: 2010Q3

REPORT INFORMATION
  Report Type: 
  Country: None (occurrence: None)
  Receive Date: 20100920
  Receipt Date: 20100108
  Transmission Date: 20110219
  Serious: No
  Sender: FDA-Public Use
  Company Number: US-ASTRAZENECA-2009UW20561

PATIENT
  Age: 49 Year
  Sex: Male
  Weight: 110.7 kg

DRUGS (5)
  1. SEROQUEL [Suspect]
     Indication: INSOMNIA
     Route: 048
     Dates: start: 20010801
  2. GEODON [Concomitant]
     Dates: start: 20050505, end: 20081201
  3. ZYPREXA [Concomitant]
     Dates: start: 20021231, end: 20050819
  4. METFORMIN [Concomitant]
  5. SIMVASTATIN [Concomitant]
     Dosage: ONE PER DAY

REACTIONS (8)
  - BLOOD CHOLESTEROL INCREASED [None]
  - BLOOD TRIGLYCERIDES INCREASED [None]
  - DEHYDRATION [None]
  - DIABETES MELLITUS [None]
  - HYPERLIPIDAEMIA [None]
  - HYPOTENSION [None]
  - OBESITY [None]
  - TYPE 2 DIABETES MELLITUS [None]
